FAERS Safety Report 8800903 (Version 1)
Quarter: 2012Q4

REPORT INFORMATION
  Report Type: 
  Country: GB (occurrence: GB)
  Receive Date: 20120921
  Receipt Date: 20120921
  Transmission Date: 20130627
  Serious: Yes (Other)
  Sender: FDA-Public Use
  Company Number: GB-PFIZER INC-2012230629

PATIENT
  Age: 55 Year
  Sex: Female

DRUGS (2)
  1. CHAMPIX [Suspect]
     Indication: SMOKING CESSATION THERAPY
     Dosage: 1 mg, 2x/day
     Route: 048
     Dates: start: 20120713, end: 20120823
  2. CHAMPIX [Suspect]
     Dosage: 0.5 mg, 2x/day
     Route: 048
     Dates: start: 20120824, end: 20120830

REACTIONS (3)
  - Nausea [Recovered/Resolved]
  - Mood altered [Recovering/Resolving]
  - Intentional self-injury [Recovering/Resolving]
